FAERS Safety Report 5275445-0 (Version None)
Quarter: 2007Q1

REPORT INFORMATION
  Report Type: 
  Country: None (occurrence: None)
  Receive Date: 20061213
  Receipt Date: 20050802
  Transmission Date: 20070707
  Serious: Yes (Other)
  Sender: FDA-Public Use
  Company Number: 2005UW11410

PATIENT
  Sex: Female

DRUGS (1)
  1. SEROQUEL [Suspect]
     Dosage: 400 MG ONCE PO
     Route: 048
     Dates: start: 20050201, end: 20050201

REACTIONS (2)
  - APTYALISM [None]
  - INTENTIONAL DRUG MISUSE [None]
